FAERS Safety Report 8723615 (Version 3)
Quarter: 2013Q1

REPORT INFORMATION
  Report Type: Report from Study
  Country: JP (occurrence: JP)
  Receive Date: 20120815
  Receipt Date: 20130123
  Transmission Date: 20140127
  Serious: Yes (Other)
  Sender: FDA-Public Use
  Company Number: JP-MERCK-2012SP036760

PATIENT
  Age: 54 Year
  Sex: Female
  Weight: 47 kg

DRUGS (17)
  1. PEGINTRON [Suspect]
     Indication: CHRONIC HEPATITIS C
     Dosage: 1.28 MICROGRAMS/KG, QW
     Route: 058
     Dates: start: 20120416
  2. REBETOL [Suspect]
     Indication: CHRONIC HEPATITIS C
     Dosage: 600 MG, QD
     Route: 048
     Dates: start: 20120416, end: 20120430
  3. REBETOL [Suspect]
     Dosage: 200 MG, QD
     Route: 048
     Dates: start: 20120501, end: 20120902
  4. REBETOL [Suspect]
     Dosage: 400 MG, QD
     Route: 048
     Dates: start: 20120903
  5. TELAVIC [Suspect]
     Indication: CHRONIC HEPATITIS C
     Dosage: 1500 MG, QD
     Route: 048
     Dates: start: 20120416, end: 20120422
  6. TELAVIC [Suspect]
     Dosage: 1000 MG, QD
     Route: 048
     Dates: start: 20120423, end: 20120617
  7. TELAVIC [Suspect]
     Dosage: 500 MG, QD
     Route: 048
     Dates: start: 20120618, end: 20120709
  8. PARIET [Concomitant]
     Indication: GASTROOESOPHAGEAL REFLUX DISEASE
     Dosage: 10 MG, QD
     Route: 048
  9. MUCOSTA [Concomitant]
     Indication: PROPHYLAXIS
     Dosage: 100 MG, QD (AS NEEDED)
     Route: 048
     Dates: start: 20120416
  10. LOXONIN [Concomitant]
     Indication: HEADACHE
     Dosage: 60 MG, QD (AS NEEDED)
     Route: 048
  11. MAGMITT [Concomitant]
     Indication: CONSTIPATION
     Dosage: 1500 MG,QD
     Route: 048
     Dates: end: 20120418
  12. MAGMITT [Concomitant]
     Dosage: 1500 MG, QD
     Route: 048
     Dates: start: 20120813
  13. TRANSAMIN [Concomitant]
     Indication: VON WILLEBRAND^S DISEASE
     Dosage: 1 DF, QD(AS NEEDED)
     Route: 048
     Dates: start: 20120717, end: 201207
  14. MOHRUS [Concomitant]
     Indication: CERVICOBRACHIAL SYNDROME
     Dosage: Q.S(FORMULATION-TAP)
     Route: 062
  15. EURAX-H [Concomitant]
     Indication: CERVICOBRACHIAL SYNDROME
     Dosage: Q.S/ QD(AS NEEDED)
     Route: 062
     Dates: end: 201205
  16. [COMPOSITION UNSPECIFIED] [Concomitant]
     Indication: CERVICOBRACHIAL SYNDROME
     Dosage: Q.S/DAY(AS NEEDED)(FORMULATION-TAP)
     Route: 062
     Dates: start: 20120425, end: 201205
  17. [COMPOSITION UNSPECIFIED] [Concomitant]
     Dosage: Q.S(FORMULATION-TAP)
     Route: 062
     Dates: start: 20120723

REACTIONS (3)
  - Renal impairment [Recovered/Resolved]
  - White blood cell count decreased [Recovered/Resolved]
  - Neutrophil count decreased [Recovered/Resolved]
